FAERS Safety Report 4663437-1 (Version None)
Quarter: 2005Q2

REPORT INFORMATION
  Report Type: 
  Country: None (occurrence: None)
  Receive Date: 20050513
  Receipt Date: 20050504
  Transmission Date: 20051028
  Serious: Yes (Death)
  Sender: FDA-Public Use
  Company Number: 163-20785-04050626

PATIENT
  Age: 50 Year
  Sex: Male

DRUGS (2)
  1. THALOMID [Suspect]
     Indication: LUNG NEOPLASM MALIGNANT
     Dosage: 100 MG, DAILY, ORAL
     Route: 048
     Dates: start: 20040304, end: 20050505
  2. THALOMID [Suspect]
     Indication: NEOPLASM MALIGNANT
     Dosage: 100 MG, DAILY, ORAL
     Route: 048
     Dates: start: 20040304, end: 20050505

REACTIONS (7)
  - CARDIO-RESPIRATORY ARREST [None]
  - LUNG NEOPLASM MALIGNANT [None]
  - MALIGNANT NEOPLASM PROGRESSION [None]
  - METASTASES TO CENTRAL NERVOUS SYSTEM [None]
  - METASTASIS [None]
  - NEOPLASM MALIGNANT [None]
  - PNEUMOTHORAX [None]
